FAERS Safety Report 10395605 (Version 1)
Quarter: 2014Q1

REPORT INFORMATION
  Report Type: Spontaneous
  Country: US (occurrence: None)
  Receive Date: 20130703
  Receipt Date: 20130703
  Transmission Date: 20141002
  Serious: No
  Sender: FDA-Public Use
  Company Number: 054163

PATIENT
  Sex: Female

DRUGS (1)
  1. LORTAB /00607101/ [Suspect]

REACTIONS (1)
  - Drug eruption [None]
